FAERS Safety Report 11365556 (Version 1)
Quarter: 2015Q3

REPORT INFORMATION
  Report Type: Spontaneous
  Country: IT (occurrence: IT)
  Receive Date: 20150811
  Receipt Date: 20150811
  Transmission Date: 20151125
  Serious: Yes (Other)
  Sender: FDA-Public Use
  Company Number: IT-BAYER-2015-085756

PATIENT
  Age: 83 Year
  Sex: Male

DRUGS (8)
  1. GLYBURIDE AND METFORMIN [Concomitant]
     Active Substance: GLYBURIDE\METFORMIN HYDROCHLORIDE
  2. ADALAT CRONO [Concomitant]
     Active Substance: NIFEDIPINE
  3. KCL RETARD ZYMA [Concomitant]
     Active Substance: POTASSIUM CHLORIDE
  4. VALERIANA OFFICINALIS ROOT [Concomitant]
     Active Substance: VALERIAN
  5. CARDIOASPIRIN [Suspect]
     Active Substance: ASPIRIN
     Dosage: DAILY DOSE 100 MG
     Route: 048
     Dates: start: 20061101, end: 20070811
  6. CARDIOASPIRIN [Suspect]
     Active Substance: ASPIRIN
     Dosage: UNK
  7. CONTROL [Concomitant]
  8. ZESTRIL [Concomitant]
     Active Substance: LISINOPRIL

REACTIONS (1)
  - Subdural haematoma [Recovering/Resolving]

NARRATIVE: CASE EVENT DATE: 20070811
